FAERS Safety Report 8537549-6 (Version None)
Quarter: 2012Q3

REPORT INFORMATION
  Report Type: 
  Country: None (occurrence: None)
  Receive Date: 20120712
  Receipt Date: 20110705
  Transmission Date: 20120928
  Serious: Yes (Death, Hospitalization)
  Sender: FDA-Public Use
  Company Number: PYR-11-14

PATIENT
  Age: 8 Month
  Sex: Female

DRUGS (5)
  1. ISONIAZID [Concomitant]
  2. RIFAMPICIN [Concomitant]
  3. PYRAZINAMIDE [Suspect]
     Indication: TUBERCULOSIS
     Dosage: 40MG/KG DAY
  4. COTRIMOXALE PROPHYLAXIS [Concomitant]
  5. ETHAMBUTOL HYDROCHLORIDE [Concomitant]

REACTIONS (7)
  - IMMUNE RECONSTITUTION SYNDROME [None]
  - VACCINATION FAILURE [None]
  - HEPATIC ENCEPHALOPATHY [None]
  - HEPATOTOXICITY [None]
  - ACUTE HEPATIC FAILURE [None]
  - HEPATIC CIRRHOSIS [None]
  - HEPATITIS B SURFACE ANTIBODY POSITIVE [None]
